FAERS Safety Report 7194097-6 (Version None)
Quarter: 2010Q4

REPORT INFORMATION
  Report Type: 
  Country: None (occurrence: None)
  Receive Date: 20101223
  Receipt Date: 20100928
  Transmission Date: 20110411
  Serious: No
  Sender: FDA-Public Use
  Company Number: US-AMGEN-TCS431244

PATIENT

DRUGS (4)
  1. ENBREL [Suspect]
     Indication: PSORIATIC ARTHROPATHY
     Dosage: 50 MG, QWK
     Route: 058
     Dates: start: 20100301
  2. ENBREL [Suspect]
     Indication: PSORIASIS
  3. ALENDRONATE SODIUM [Concomitant]
     Dosage: UNK UNK, QWK
     Route: 048
     Dates: start: 20070701
  4. DIGOXIN [Concomitant]
     Dosage: UNK UNK, QD
     Route: 048
     Dates: start: 20070701

REACTIONS (3)
  - ARTHRITIS [None]
  - JOINT RANGE OF MOTION DECREASED [None]
  - PAIN IN EXTREMITY [None]
